FAERS Safety Report 11759460 (Version 1)
Quarter: 2015Q4

REPORT INFORMATION
  Report Type: Spontaneous
  Country: US (occurrence: US)
  Receive Date: 20151120
  Receipt Date: 20151120
  Transmission Date: 20160304
  Serious: No
  Sender: FDA-Public Use
  Company Number: US-ELI_LILLY_AND_COMPANY-US201210003043

PATIENT
  Sex: Female

DRUGS (3)
  1. FORTEO [Suspect]
     Active Substance: TERIPARATIDE
     Indication: OSTEOPOROSIS
     Dosage: 20 UG, QD
     Route: 065
     Dates: start: 201204
  2. TYLENOL ARTHRITIS PAIN [Concomitant]
     Active Substance: ACETAMINOPHEN
  3. MELOXICAM. [Concomitant]
     Active Substance: MELOXICAM

REACTIONS (7)
  - Pain in extremity [Unknown]
  - Gait disturbance [Unknown]
  - Limb discomfort [Unknown]
  - Pelvic pain [Unknown]
  - Musculoskeletal pain [Unknown]
  - Musculoskeletal discomfort [Unknown]
  - Arthralgia [Unknown]

NARRATIVE: CASE EVENT DATE: 2012
